FAERS Safety Report 24658580 (Version 1)
Quarter: 2024Q4

REPORT INFORMATION
  Report Type: Report from Study
  Country: US (occurrence: US)
  Receive Date: 20241125
  Receipt Date: 20241125
  Transmission Date: 20250114
  Serious: Yes (Hospitalization)
  Sender: ABBVIE
  Company Number: US-ABBVIE-6017326

PATIENT
  Age: 64 Year
  Sex: Female

DRUGS (1)
  1. RINVOQ [Suspect]
     Active Substance: UPADACITINIB
     Indication: Psoriatic arthropathy
     Dosage: FORM STRENGTH: 15MG?LAST ADMIN DATE: 2024
     Route: 048
     Dates: start: 202410

REACTIONS (5)
  - Hepatic encephalopathy [Unknown]
  - Metabolic dysfunction-associated steatohepatitis [Unknown]
  - Pyrexia [Not Recovered/Not Resolved]
  - Arthralgia [Unknown]
  - Diverticulitis [Unknown]

NARRATIVE: CASE EVENT DATE: 20240101
